FAERS Safety Report 18689043 (Version 1)
Quarter: 2020Q4

REPORT INFORMATION
  Report Type: Spontaneous
  Country: US (occurrence: US)
  Receive Date: 20201231
  Receipt Date: 20201231
  Transmission Date: 20210114
  Serious: Yes (Death, Life-Threatening, Hospitalization)
  Sender: FDA-Public Use
  Company Number: US-STRIDES ARCOLAB LIMITED-2020SP016468

PATIENT
  Age: 65 Year
  Sex: Male

DRUGS (3)
  1. TACROLIMUS. [Suspect]
     Active Substance: TACROLIMUS
     Indication: RENAL TRANSPLANT
     Dosage: 2 MILLIGRAM, BID
     Route: 065
  2. MYCOPHENOLATE MOFETIL. [Suspect]
     Active Substance: MYCOPHENOLATE MOFETIL
     Indication: RENAL TRANSPLANT
     Dosage: 250 MILLIGRAM, BID
     Route: 065
  3. PREDNISOLONE. [Suspect]
     Active Substance: PREDNISOLONE
     Indication: RENAL TRANSPLANT
     Dosage: 5 MILLIGRAM PER DAY
     Route: 065

REACTIONS (14)
  - Septic shock [Unknown]
  - Osteomyelitis acute [Unknown]
  - Sepsis [Unknown]
  - Clostridium difficile colitis [Unknown]
  - Osteomyelitis chronic [Unknown]
  - Infective tenosynovitis [Unknown]
  - Renal failure [Unknown]
  - Acarodermatitis [Unknown]
  - Escherichia infection [Unknown]
  - Cellulitis [Unknown]
  - Acidosis [Unknown]
  - Urosepsis [Unknown]
  - Toxoplasmosis [Unknown]
  - Mycobacterium haemophilum infection [Fatal]
